FAERS Safety Report 6439889-3 (Version None)
Quarter: 2009Q4

REPORT INFORMATION
  Report Type: 
  Country: None (occurrence: None)
  Receive Date: 20091113
  Receipt Date: 20091016
  Transmission Date: 20100525
  Serious: Yes (Death, Hospitalization)
  Sender: FDA-Public Use
  Company Number: US-PFIZER INC-2007049246

PATIENT
  Sex: Female
  Weight: 43.2 kg

DRUGS (11)
  1. AXITINIB [Suspect]
     Indication: GASTRIC CANCER
     Dosage: 5 MG 2XDAY TDD 10  MG
     Route: 048
     Dates: start: 20070420, end: 20070616
  2. IRINOTECAN HCL [Suspect]
     Indication: GASTRIC CANCER
     Dosage: 280 MG, EVERY 2 WEEKS
     Route: 042
     Dates: start: 20070418, end: 20070418
  3. IRINOTECAN HCL [Suspect]
     Dosage: 240 MG,EVERY 2 WEEKS
     Route: 042
     Dates: start: 20070509, end: 20070606
  4. FLUOROURACIL [Suspect]
     Indication: GASTRIC CANCER
     Dosage: 650 MG, CYCLIC, EVERY 2 WEEKS
     Route: 040
     Dates: start: 20070418, end: 20070418
  5. FLUOROURACIL [Suspect]
     Dosage: 1900 MG, EVERY TWO WEEKS
     Route: 041
     Dates: start: 20070418, end: 20070418
  6. FLUOROURACIL [Suspect]
     Dosage: 500 MG, CYCLIC, EVERY TWO WEEKS
     Route: 040
     Dates: start: 20070509, end: 20070606
  7. FLUOROURACIL [Suspect]
     Dosage: 1525 MG, EVERY TWO WEEKS
     Route: 041
     Dates: start: 20070509, end: 20070606
  8. FOLINIC ACID [Suspect]
     Indication: GASTRIC CANCER
     Dosage: 650 MG, QD EVERY 2 WEEKS
     Route: 042
     Dates: start: 20070418, end: 20070606
  9. LORTAB [Concomitant]
     Dosage: Q4 PRN
     Route: 048
     Dates: start: 20070409
  10. KYTRIL [Concomitant]
     Route: 048
     Dates: start: 20070511
  11. OCEAN NASAL SPRAY [Concomitant]
     Route: 045
     Dates: start: 20070521

REACTIONS (2)
  - ABDOMINAL PAIN [None]
  - RESPIRATORY FAILURE [None]
